FAERS Safety Report 13366387 (Version 1)
Quarter: 2017Q1

REPORT INFORMATION
  Report Type: Spontaneous
  Country: US (occurrence: US)
  Receive Date: 20170323
  Receipt Date: 20170323
  Transmission Date: 20170429
  Serious: No
  Sender: FDA-Public Use
  Company Number: US-TEVA-751315USA

PATIENT
  Age: 54 Year
  Sex: Female

DRUGS (8)
  1. PROBIOTIC [Concomitant]
     Active Substance: PROBIOTICS NOS
  2. PREDNISONE. [Concomitant]
     Active Substance: PREDNISONE
  3. METHYLPRED [Concomitant]
     Active Substance: METHYLPREDNISOLONE
  4. PREVACID [Concomitant]
     Active Substance: LANSOPRAZOLE
  5. DONNATAL [Concomitant]
     Active Substance: ATROPINE SULFATE\HYOSCYAMINE SULFATE\PHENOBARBITAL\SCOPOLAMINE HYDROBROMIDE
  6. BONIVA [Concomitant]
     Active Substance: IBANDRONATE SODIUM
  7. COPAXONE [Suspect]
     Active Substance: GLATIRAMER ACETATE
     Indication: MULTIPLE SCLEROSIS
     Route: 058
  8. PROLIA [Concomitant]
     Active Substance: DENOSUMAB

REACTIONS (1)
  - Fatigue [Not Recovered/Not Resolved]

NARRATIVE: CASE EVENT DATE: 201703
